FAERS Safety Report 8215595-X (Version None)
Quarter: 2012Q1

REPORT INFORMATION
  Report Type: 
  Country: None (occurrence: None)
  Receive Date: 20120316
  Receipt Date: 20120307
  Transmission Date: 20120608
  Serious: Yes (Other)
  Sender: FDA-Public Use
  Company Number: AU-JNJFOC-20120305207

PATIENT
  Sex: Male

DRUGS (8)
  1. UNSPECIFIED ARTHRITIC MEDICATION [Concomitant]
     Indication: RHEUMATOID ARTHRITIS
  2. PANADOL OSTEO [Concomitant]
     Dosage: 2 TABLETS
  3. PREDNISOLONE [Concomitant]
  4. REMICADE [Suspect]
     Route: 042
     Dates: start: 20120111
  5. REMICADE [Suspect]
     Dosage: TOTAL NUMBER OF DOSES: 5
     Route: 042
  6. CARTIA XT [Concomitant]
  7. REMICADE [Suspect]
     Indication: RHEUMATOID ARTHRITIS
     Route: 042
     Dates: start: 20120307
  8. AVAPRO [Concomitant]

REACTIONS (9)
  - INSOMNIA [None]
  - INTERVERTEBRAL DISC PROTRUSION [None]
  - DECREASED APPETITE [None]
  - WEIGHT DECREASED [None]
  - PYREXIA [None]
  - FATIGUE [None]
  - CHILLS [None]
  - MALAISE [None]
  - NAUSEA [None]
